FAERS Safety Report 8618479-8 (Version None)
Quarter: 2012Q2

REPORT INFORMATION
  Report Type: 
  Country: None (occurrence: None)
  Receive Date: 20120423
  Receipt Date: 20091005
  Transmission Date: 20120825
  Serious: Yes (Hospitalization)
  Sender: FDA-Public Use
  Company Number: PHEH2009US12026

PATIENT
  Age: 28 Year
  Sex: Female

DRUGS (5)
  1. EXJADE [Suspect]
     Indication: IRON OVERLOAD
     Dosage: 500 MG, BID, ORAL
     Route: 048
     Dates: start: 20080101
  2. EXJADE [Suspect]
     Indication: APLASTIC ANAEMIA
     Dosage: 500 MG, BID, ORAL
     Route: 048
     Dates: start: 20080101
  3. POSACONAZOLE [Concomitant]
  4. PROTONIX ^WYETH-AYERST^ (PANTOPRAZOLE SODIUM) [Concomitant]
  5. CELLCEPT [Concomitant]

REACTIONS (2)
  - HEPATIC FUNCTION ABNORMAL [None]
  - LIVER INJURY [None]
